FAERS Safety Report 8456443-2 (Version None)
Quarter: 2012Q2

REPORT INFORMATION
  Report Type: 
  Country: None (occurrence: None)
  Receive Date: 20120323
  Receipt Date: 20110916
  Transmission Date: 20120825
  Serious: Yes (Other)
  Sender: FDA-Public Use
  Company Number: 163-21880-11092173

PATIENT
  Age: 57 Year
  Sex: Female

DRUGS (6)
  1. REVLIMID [Suspect]
     Indication: MULTIPLE MYELOMA
     Dosage: 25 MG, DAILY X21 DAYS OUT OF 28 DAY CYCLE, PO
     Route: 048
     Dates: start: 20110601
  2. ASPIRIN [Concomitant]
  3. BUSPAR [Concomitant]
  4. PROTONIX (PANTOPRAZOLE)(UNKNOWN) [Concomitant]
  5. DEXAMETHASONE [Concomitant]
  6. HYDROCODONE/APAP (PROCET /USA/)(UNKNOWN) [Concomitant]

REACTIONS (1)
  - DEEP VEIN THROMBOSIS [None]
